FAERS Safety Report 9004359 (Version 1)
Quarter: 2013Q1

REPORT INFORMATION
  Report Type: Report from Study
  Country: US (occurrence: US)
  Receive Date: 20130108
  Receipt Date: 20130108
  Transmission Date: 20140127
  Serious: Yes (Hospitalization)
  Sender: FDA-Public Use
  Company Number: US-ROCHE-1175196

PATIENT
  Age: 62 Year
  Sex: Female

DRUGS (16)
  1. TORASEMIDE [Suspect]
     Indication: HYPERTENSION
     Route: 048
     Dates: start: 201006
  2. TORASEMIDE [Suspect]
     Route: 048
     Dates: start: 20120226
  3. LOSARTAN [Suspect]
     Indication: HYPERTENSION
     Route: 048
     Dates: start: 201103
  4. TEKTURNA [Suspect]
     Indication: HYPERTENSION
     Route: 065
     Dates: start: 2009
  5. CLONIDINE [Concomitant]
     Indication: HYPERTENSION
     Route: 048
  6. VITAMIN D [Concomitant]
     Route: 048
  7. TYLENOL [Concomitant]
     Indication: ARTHRALGIA
     Route: 048
     Dates: start: 2006
  8. CALCITRIOL [Concomitant]
     Route: 048
     Dates: start: 201106
  9. PREDNISONE [Concomitant]
     Indication: GOUT
     Route: 048
     Dates: start: 20110808
  10. NOVOLOG [Concomitant]
     Indication: TYPE 2 DIABETES MELLITUS
     Route: 058
     Dates: start: 2010
  11. LANTUS [Concomitant]
     Indication: TYPE 2 DIABETES MELLITUS
     Route: 058
     Dates: start: 201006
  12. FISH OIL [Concomitant]
     Dosage: 500 UT QD
     Route: 048
     Dates: start: 2000
  13. MULTIVITAMIN [Concomitant]
     Route: 048
     Dates: start: 2000
  14. COLCHICINE [Concomitant]
     Indication: GOUT
     Route: 048
     Dates: start: 20111206
  15. MAGNESIUM OXIDE [Concomitant]
     Indication: HYPOMAGNESAEMIA
     Route: 065
     Dates: start: 20120301
  16. IRBESARTAN HEXAL [Concomitant]
     Route: 065

REACTIONS (1)
  - Gout [Recovered/Resolved]
